FAERS Safety Report 4384213-3 (Version None)
Quarter: 2004Q2

REPORT INFORMATION
  Report Type: 
  Country: None (occurrence: None)
  Receive Date: 20040618
  Receipt Date: 20040605
  Transmission Date: 20050107
  Serious: Yes (Other)
  Sender: FDA-Public Use
  Company Number: 2004031711

PATIENT
  Age: 16 Year
  Sex: Male

DRUGS (3)
  1. GEODON [Suspect]
     Indication: BIPOLAR DISORDER
     Dosage: 80 MG (40 MG, 2 IN 1 D), ORAL
     Route: 048
     Dates: start: 20040201
  2. BENZATROPINE MESILATE (BENZATROPINE MESILATE) [Suspect]
     Indication: ILL-DEFINED DISORDER
     Dosage: ORAL
     Route: 048
     Dates: start: 20040201
  3. ERYTHROMYCIN [Suspect]
     Indication: INFECTION

REACTIONS (2)
  - DYSTONIA [None]
  - OROPHARYNGEAL SWELLING [None]
